FAERS Safety Report 8227353-0 (Version None)
Quarter: 2012Q1

REPORT INFORMATION
  Report Type: 
  Country: None (occurrence: None)
  Receive Date: 20120322
  Receipt Date: 20120315
  Transmission Date: 20120608
  Serious: Yes (Hospitalization, Other)
  Sender: FDA-Public Use
  Company Number: US-BAYER-2011-122303

PATIENT
  Age: 23 Year
  Sex: Female
  Weight: 84.807 kg

DRUGS (4)
  1. LORAZEPAM [Concomitant]
     Dosage: 1 MG, UNK
  2. NEXIUM [Concomitant]
     Dosage: 40 MG, UNK
  3. YAZ [Suspect]
     Indication: CONTRACEPTION
     Dosage: UNK
     Dates: start: 20081101, end: 20091101
  4. FEMCON FE [Concomitant]

REACTIONS (12)
  - FEAR [None]
  - PAIN [None]
  - ABDOMINAL PAIN [None]
  - DYSPEPSIA [None]
  - QUALITY OF LIFE DECREASED [None]
  - CHOLECYSTITIS CHRONIC [None]
  - EMOTIONAL DISTRESS [None]
  - ANXIETY [None]
  - PSYCHOLOGICAL TRAUMA [None]
  - PROCEDURAL PAIN [None]
  - GALLBLADDER DISORDER [None]
  - INJURY [None]
